FAERS Safety Report 25038060 (Version 1)
Quarter: 2025Q1

REPORT INFORMATION
  Report Type: Spontaneous
  Country: KR (occurrence: KR)
  Receive Date: 20250304
  Receipt Date: 20250304
  Transmission Date: 20250409
  Serious: Yes (Other)
  Sender: MERCK SHARP & DOHME LLC
  Company Number: KR-009507513-2258115

PATIENT
  Age: 63 Year
  Sex: Male

DRUGS (3)
  1. KEYTRUDA [Suspect]
     Active Substance: PEMBROLIZUMAB
     Route: 050
     Dates: start: 20231108, end: 20231108
  2. CARBOPLATIN [Suspect]
     Active Substance: CARBOPLATIN
     Route: 050
     Dates: start: 20231108, end: 20231108
  3. PACLITAXEL [Suspect]
     Active Substance: PACLITAXEL
     Route: 050
     Dates: start: 20231108, end: 20231108

REACTIONS (1)
  - Leukopenia [Recovered/Resolved]

NARRATIVE: CASE EVENT DATE: 20231116
